FAERS Safety Report 13663366 (Version 1)
Quarter: 2017Q2

REPORT INFORMATION
  Report Type: Spontaneous
  Country: BR (occurrence: BR)
  Receive Date: 20170619
  Receipt Date: 20170619
  Transmission Date: 20170830
  Serious: Yes (Other)
  Sender: FDA-Public Use
  Company Number: BR-SUN PHARMACEUTICAL INDUSTRIES LTD-2017R1-136146

PATIENT
  Age: 49 Year
  Sex: Male

DRUGS (4)
  1. AZATHIOPRINE. [Suspect]
     Active Substance: AZATHIOPRINE
     Indication: ULNAR NEURITIS
     Dosage: 50 MG, DAILY (50-100 MG OVER PAST 6 MONTHS) )
  2. PREDNISONE. [Suspect]
     Active Substance: PREDNISONE
     Indication: LEPROSY
     Dosage: 60 MG (10-60 MG/DAY OVER THE PAST 6 MONTHS)
     Route: 065
  3. PREDNISONE. [Suspect]
     Active Substance: PREDNISONE
     Indication: ULNAR NEURITIS
  4. AZATHIOPRINE. [Suspect]
     Active Substance: AZATHIOPRINE
     Indication: LEPROSY

REACTIONS (2)
  - Rash generalised [Recovered/Resolved]
  - Strongyloidiasis [Recovered/Resolved]
